FAERS Safety Report 13566851 (Version 2)
Quarter: 2017Q2

REPORT INFORMATION
  Report Type: Spontaneous
  Country: JP (occurrence: JP)
  Receive Date: 20170522
  Receipt Date: 20170609
  Transmission Date: 20170830
  Serious: Yes (Hospitalization)
  Sender: FDA-Public Use
  Company Number: JP-TEVA-2017-JP-001387J

PATIENT
  Age: 63 Year
  Sex: Male

DRUGS (3)
  1. DIAPHENYLSULFONE [Concomitant]
     Indication: PEMPHIGOID
     Dosage: 150 MILLIGRAM DAILY;
     Route: 048
     Dates: start: 201412
  2. MIZORIBINE [Concomitant]
     Active Substance: MIZORIBINE
     Indication: PEMPHIGOID
     Dosage: 100 MILLIGRAM DAILY;
     Route: 048
     Dates: start: 201412
  3. PREDNISOLONE TABLETS 5MG [Suspect]
     Active Substance: PREDNISOLONE
     Indication: PEMPHIGOID
     Dosage: 25 MILLIGRAM DAILY;
     Route: 048
     Dates: start: 201412

REACTIONS (1)
  - Tendon rupture [Unknown]
